FAERS Safety Report 8325756-7 (Version None)
Quarter: 2012Q2

REPORT INFORMATION
  Report Type: 
  Country: None (occurrence: None)
  Receive Date: 20120501
  Receipt Date: 20120419
  Transmission Date: 20120825
  Serious: No
  Sender: FDA-Public Use
  Company Number: US-BIOGENIDEC-2011BI027915

PATIENT
  Age: 36 Year
  Sex: Female

DRUGS (3)
  1. TYSABRI [Suspect]
     Indication: MULTIPLE SCLEROSIS
     Route: 042
     Dates: start: 20110711, end: 20120206
  2. AVONEX [Concomitant]
     Indication: MULTIPLE SCLEROSIS
     Route: 030
  3. AVONEX [Concomitant]
     Route: 030
     Dates: start: 20110110

REACTIONS (18)
  - NIGHT SWEATS [None]
  - NAUSEA [None]
  - FALL [None]
  - FRACTURED COCCYX [None]
  - CANDIDIASIS [None]
  - ARTHRALGIA [None]
  - MEMORY IMPAIRMENT [None]
  - ABDOMINAL PAIN UPPER [None]
  - MULTIPLE SCLEROSIS RELAPSE [None]
  - PYREXIA [None]
  - BALANCE DISORDER [None]
  - BONE PAIN [None]
  - MUSCULOSKELETAL DISORDER [None]
  - OEDEMA PERIPHERAL [None]
  - FATIGUE [None]
  - ANTINUCLEAR ANTIBODY INCREASED [None]
  - APHAGIA [None]
  - WEIGHT DECREASED [None]
